FAERS Safety Report 6182298-5 (Version None)
Quarter: 2009Q2

REPORT INFORMATION
  Report Type: 
  Country: None (occurrence: None)
  Receive Date: 20090505
  Receipt Date: 20090505
  Transmission Date: 20091009
  Serious: Yes (Other)
  Sender: FDA-Public Use
  Company Number: None

PATIENT
  Sex: Male

DRUGS (1)
  1. HUMIRA [Suspect]
     Indication: ARTHRITIS
     Dosage: 40MG EVERY 2 WEEKS SQ

REACTIONS (7)
  - DYSPHONIA [None]
  - HAEMATEMESIS [None]
  - HEADACHE [None]
  - JOINT SWELLING [None]
  - NONSPECIFIC REACTION [None]
  - PRURITUS [None]
  - RASH [None]
